FAERS Safety Report 6879455-9 (Version None)
Quarter: 2010Q3

REPORT INFORMATION
  Report Type: 
  Country: None (occurrence: None)
  Receive Date: 20100728
  Receipt Date: 20100716
  Transmission Date: 20110219
  Serious: Yes (Hospitalization)
  Sender: FDA-Public Use
  Company Number: AU-WATSON-2010-09646

PATIENT
  Age: 66 Year
  Sex: Male

DRUGS (2)
  1. FLUOROURACIL [Suspect]
     Indication: OESOPHAGEAL ADENOCARCINOMA
     Dosage: 1 G/ MM
     Route: 042
  2. CISPLATIN [Concomitant]
     Indication: OESOPHAGEAL ADENOCARCINOMA
     Route: 042

REACTIONS (1)
  - MYOCARDIAL INFARCTION [None]
